FAERS Safety Report 7026719-4 (Version None)
Quarter: 2010Q4

REPORT INFORMATION
  Report Type: 
  Country: None (occurrence: None)
  Receive Date: 20101004
  Receipt Date: 20100922
  Transmission Date: 20110411
  Serious: Yes (Other)
  Sender: FDA-Public Use
  Company Number: DE-SANOFI-AVENTIS-2010SA056958

PATIENT
  Age: 67 Year
  Sex: Male

DRUGS (5)
  1. TRENTAL [Suspect]
     Route: 048
     Dates: start: 19900101, end: 20100701
  2. TRENTAL [Suspect]
     Route: 048
     Dates: start: 20100901
  3. ISCOVER [Concomitant]
     Indication: PRODUCT USED FOR UNKNOWN INDICATION
     Dates: start: 20100701
  4. ATACAND [Concomitant]
     Indication: PRODUCT USED FOR UNKNOWN INDICATION
  5. SIMVASTATIN [Concomitant]
     Indication: PRODUCT USED FOR UNKNOWN INDICATION

REACTIONS (1)
  - EPILEPSY [None]
